FAERS Safety Report 18641460 (Version 1)
Quarter: 2020Q4

REPORT INFORMATION
  Report Type: Spontaneous
  Country: US (occurrence: US)
  Receive Date: 20201221
  Receipt Date: 20201221
  Transmission Date: 20210114
  Serious: No
  Sender: FDA-Public Use
  Company Number: US-AUROBINDO-AUR-APL-2020-037198

PATIENT
  Age: 79 Year
  Sex: Female
  Weight: 77.11 kg

DRUGS (6)
  1. PREMARIN [Concomitant]
     Active Substance: ESTROGENS, CONJUGATED
     Indication: PROPHYLAXIS
     Dosage: 1 DOSAGE FORM, ONCE A DAY
     Route: 048
  2. CITALOPRAM [Suspect]
     Active Substance: CITALOPRAM HYDROBROMIDE
     Dosage: 1 DOSAGE FORM (TOOK ONE LAST NIGHT)
     Route: 065
  3. PREMARIN [Concomitant]
     Active Substance: ESTROGENS, CONJUGATED
     Dosage: 2 DOSAGE FORM (IF FEELS ANXIOUS OR DOWN, SHE MAY TAKE TWO PREMARIN TABLETS, BUT SHE RARELY DOES THAT
     Route: 065
  4. CITALOPRAM [Suspect]
     Active Substance: CITALOPRAM HYDROBROMIDE
     Indication: DRUG WITHDRAWAL MAINTENANCE THERAPY
     Dosage: 20 MILLIGRAM, ONCE A DAY
     Route: 048
  5. PREMARIN [Concomitant]
     Active Substance: ESTROGENS, CONJUGATED
     Indication: ANXIETY
     Dosage: 1 AND HALF TABLET AND FEELS GREAT
     Route: 065
  6. DILTIAZEM. [Concomitant]
     Active Substance: DILTIAZEM
     Indication: ARRHYTHMIA PROPHYLAXIS
     Dosage: 1 DOSAGE FORM, ONCE A DAY
     Route: 048
     Dates: start: 2019

REACTIONS (4)
  - Crying [Unknown]
  - Drug ineffective [Unknown]
  - Tremor [Unknown]
  - Feeling abnormal [Unknown]
